FAERS Safety Report 4801779-7 (Version None)
Quarter: 2005Q3

REPORT INFORMATION
  Report Type: 
  Country: None (occurrence: None)
  Receive Date: 20050929
  Receipt Date: 20050727
  Transmission Date: 20060218
  Serious: No
  Sender: FDA-Public Use
  Company Number: 05P-163-0306772-00

PATIENT
  Age: 45 Year
  Sex: Female
  Weight: 46.7205 kg

DRUGS (6)
  1. HUMIRA [Suspect]
     Indication: RHEUMATOID ARTHRITIS
     Dosage: 40 MG, 1 IN 2 WK, SUBCUTANEOUS
     Route: 058
     Dates: start: 20041001, end: 20050722
  2. BUCINDOLOL HYDROCHLORIDE [Concomitant]
  3. PREDNISONE [Concomitant]
  4. FOLIC ACID [Concomitant]
  5. ALENDRONATE SODIUM [Concomitant]
  6. METHOTREXATE [Concomitant]

REACTIONS (2)
  - FATIGUE [None]
  - MUSCULAR WEAKNESS [None]
